FAERS Safety Report 12855438 (Version 2)
Quarter: 2016Q4

REPORT INFORMATION
  Report Type: Report from Study
  Country: US (occurrence: US)
  Receive Date: 20161017
  Receipt Date: 20161027
  Transmission Date: 20170207
  Serious: Yes (Death, Hospitalization)
  Sender: FDA-Public Use
  Company Number: US-ACTELION-A-US2016-143680

PATIENT
  Age: 76 Year
  Sex: Male

DRUGS (2)
  1. VELETRI [Suspect]
     Active Substance: EPOPROSTENOL
     Indication: PULMONARY ARTERIAL HYPERTENSION
     Dosage: 40.5 NG/KG, PER MIN
     Route: 042
     Dates: start: 201502, end: 20161005
  2. OPSUMIT [Suspect]
     Active Substance: MACITENTAN
     Indication: PULMONARY ARTERIAL HYPERTENSION
     Dosage: 10 MG, QD
     Route: 048

REACTIONS (5)
  - Acute respiratory failure [Fatal]
  - Right ventricular failure [Fatal]
  - Hypotension [Fatal]
  - Fluid retention [Fatal]
  - Hypoxia [Fatal]
